FAERS Safety Report 15586687 (Version 1)
Quarter: 2018Q4

REPORT INFORMATION
  Report Type: Spontaneous
  Country: US (occurrence: US)
  Receive Date: 20181105
  Receipt Date: 20181105
  Transmission Date: 20190205
  Serious: Yes (Hospitalization, Other)
  Sender: FDA-Public Use
  Company Number: None

PATIENT
  Age: 12 Year
  Sex: Male
  Weight: 29.25 kg

DRUGS (5)
  1. PREVACID [Concomitant]
     Active Substance: LANSOPRAZOLE
  2. IRON [Concomitant]
     Active Substance: IRON
  3. VIT. D [Concomitant]
  4. FLOVENT [Concomitant]
     Active Substance: FLUTICASONE PROPIONATE
  5. NUTROPIN AQ NUSPIN 10 [Suspect]
     Active Substance: SOMATROPIN
     Indication: BODY HEIGHT BELOW NORMAL
     Dosage: ?          QUANTITY:1.1 INJECTION(S);OTHER ROUTE:SUBCUTANEOUS INJECTION?
     Route: 058
     Dates: start: 20180601, end: 20181031

REACTIONS (3)
  - Intracranial pressure increased [None]
  - Visual impairment [None]
  - Papilloedema [None]

NARRATIVE: CASE EVENT DATE: 20181101
